FAERS Safety Report 6753562-3 (Version None)
Quarter: 2010Q2

REPORT INFORMATION
  Report Type: 
  Country: None (occurrence: None)
  Receive Date: 20100603
  Receipt Date: 20100525
  Transmission Date: 20101027
  Serious: Yes (Death)
  Sender: FDA-Public Use
  Company Number: US-KINGPHARMUSA00001-K200901223

PATIENT
  Sex: Male
  Weight: 99.32 kg

DRUGS (19)
  1. EMBEDA [Suspect]
     Indication: BACK PAIN
     Dosage: 60 MG, BID
     Route: 048
     Dates: start: 20090928
  2. AVINZA [Suspect]
     Indication: BACK PAIN
     Dosage: 60 MG, BID
     Route: 048
     Dates: start: 20090928
  3. AVINZA [Suspect]
     Dosage: 60 MG, QD
     Route: 048
     Dates: start: 20090924, end: 20090927
  4. LITHIUM CARBONATE [Concomitant]
     Dosage: UNK
     Dates: start: 20090925
  5. NEURONTIN [Concomitant]
     Dosage: 300 MG, TID
     Route: 048
  6. SEROQUEL [Concomitant]
     Dosage: 200 TO 400 MG, QHS
  7. CYMBALTA [Concomitant]
     Dosage: 30 MG, QD
  8. OXYCODONE WITH APAP [Concomitant]
     Dosage: 5/325 2 TABLETS, QID
  9. CYCLOBENZAPRINE HYDROCHLORIDE [Concomitant]
     Dosage: 10 MG, TID
  10. ALPRAZOLAM [Concomitant]
     Dosage: 0.5 MG, TID
  11. ALLEGRA D 24 HOUR [Concomitant]
     Indication: SEASONAL ALLERGY
     Dosage: UNK
  12. CLARINEX [Concomitant]
     Indication: SEASONAL ALLERGY
     Dosage: 5 MG, QD
  13. ALBUTEROL [Concomitant]
     Dosage: 0.083 %, QID
  14. ADVAIR DISKUS 100/50 [Concomitant]
     Dosage: ^50/500,^ BID
  15. NEXIUM [Concomitant]
     Dosage: 40 MG, PRN
  16. LOMOTIL [Concomitant]
     Dosage: 2.5 MG, PRN
  17. BENZONATATE [Concomitant]
     Dosage: 200 MG, PRN
  18. IBUPROFEN [Concomitant]
     Indication: BACK PAIN
     Dosage: 800 MG, TID
     Route: 048
  19. FLUTICASONE PROPIONATE [Concomitant]
     Dosage: SPRAY, BID
     Route: 045

REACTIONS (3)
  - ADVERSE DRUG REACTION [None]
  - COMPLETED SUICIDE [None]
  - INTENTIONAL OVERDOSE [None]
